FAERS Safety Report 5726246-8 (Version None)
Quarter: 2008Q2

REPORT INFORMATION
  Report Type: 
  Country: None (occurrence: None)
  Receive Date: 20080502
  Receipt Date: 20080424
  Transmission Date: 20081010
  Serious: Yes (Other)
  Sender: FDA-Public Use
  Company Number: ES-JNJFOC-20080403317

PATIENT
  Age: 39 Year
  Sex: Male
  Weight: 80 kg

DRUGS (3)
  1. REMICADE [Suspect]
     Dosage: TOTAL # INFUSIONS: 3
     Route: 042
  2. REMICADE [Suspect]
     Dosage: TOTAL # INFUSIONS: 3
     Route: 042
  3. REMICADE [Suspect]
     Indication: PSORIASIS
     Dosage: TOTAL # INFUSIONS: 3
     Route: 042

REACTIONS (2)
  - PARADOXICAL DRUG REACTION [None]
  - TUBERCULOSIS [None]
